FAERS Safety Report 5659391-6 (Version None)
Quarter: 2008Q1

REPORT INFORMATION
  Report Type: 
  Country: None (occurrence: None)
  Receive Date: 20080311
  Receipt Date: 20080226
  Transmission Date: 20080703
  Serious: Yes (Life-Threatening, Hospitalization, Other)
  Sender: FDA-Public Use
  Company Number: GB-RANBAXY-2008RR-13375

PATIENT

DRUGS (5)
  1. IBUPROFEN TABLETS BP 400MG [Suspect]
     Dosage: 400 MG, TID
     Route: 048
     Dates: start: 20080212, end: 20080212
  2. ALENDRONIC ACID 70MG TABLETS [Concomitant]
     Dosage: 70 MG, 1/WEEK
     Route: 048
     Dates: start: 20071001
  3. CALCICHEW [Concomitant]
     Dosage: 2 DF, QD
     Route: 048
     Dates: start: 20071001
  4. ALBUTEROL [Concomitant]
     Dosage: 2 DF, Q3H
     Route: 055
     Dates: start: 20051010
  5. SYMBICORT [Concomitant]
     Dosage: 2 DF, QID
     Route: 055
     Dates: start: 20060821

REACTIONS (2)
  - DYSPNOEA [None]
  - RESUSCITATION [None]
